FAERS Safety Report 4712207-4 (Version None)
Quarter: 2005Q3

REPORT INFORMATION
  Report Type: 
  Country: None (occurrence: None)
  Receive Date: 20050712
  Receipt Date: 20050706
  Transmission Date: 20060218
  Serious: Yes (Other)
  Sender: FDA-Public Use
  Company Number: PHEH2005US07561

PATIENT
  Age: 79 Year
  Sex: Female
  Weight: 78 kg

DRUGS (2)
  1. ENABLEX [Suspect]
     Indication: URINARY INCONTINENCE
     Dosage: 7.5 MG, QD
     Route: 048
     Dates: start: 20050617, end: 20050705
  2. COUMADIN [Concomitant]

REACTIONS (6)
  - CAST APPLICATION [None]
  - DIZZINESS [None]
  - FALL [None]
  - FEELING ABNORMAL [None]
  - FRACTURE [None]
  - HALLUCINATION [None]
